FAERS Safety Report 9787562 (Version 3)
Quarter: 2014Q1

REPORT INFORMATION
  Report Type: Spontaneous
  Country: GB (occurrence: None)
  Receive Date: 20131224
  Receipt Date: 20140122
  Transmission Date: 20141002
  Serious: Yes (Hospitalization, Congenital Anomaly, Other)
  Sender: FDA-Public Use
  Company Number: AUR-APL-2013-10579

PATIENT
  Age: 1 Year
  Sex: Male
  Weight: 3.4 kg

DRUGS (12)
  1. OLANZAPINE [Suspect]
     Indication: PRODUCT USED FOR UNKNOWN INDICATION
     Route: 064
     Dates: start: 20120112, end: 20120114
  2. ALCOHOL [Suspect]
     Indication: PRODUCT USED FOR UNKNOWN INDICATION
     Route: 064
  3. RISPERDAL [Suspect]
     Indication: SCHIZOPHRENIA, PARANOID TYPE
     Dosage: 6 MG (3 MG, 2 IN 1 D), TRANSPLACENTAL
     Route: 064
     Dates: start: 20110308, end: 20120609
  4. CHLORPROMAZINE [Suspect]
     Indication: SCHIZOPHRENIA, PARANOID TYPE
     Dosage: 75 MG (25 MG, 3 IN 1 D), TRANSPLACENTAL
     Route: 064
     Dates: start: 20111215, end: 20111219
  5. CYCLIZINE [Suspect]
     Indication: PRODUCT USED FOR UNKNOWN INDICATION
     Route: 064
     Dates: start: 20111228, end: 20120131
  6. ENTONOX [Suspect]
     Indication: ANALGESIC THERAPY
     Dosage: 1 IN 1 AS REQUIRED, TRANSPLACENTAL
     Route: 064
     Dates: start: 20120718, end: 20120718
  7. HALOPERIDOL [Suspect]
     Indication: SCHIZOPHRENIA, PARANOID TYPE
     Dosage: 10 MG (5 MG, 2 IN 1 D), TRANSPLACENTAL
     Route: 064
     Dates: start: 20111229, end: 20120104
  8. PROMETHAZINE [Suspect]
     Indication: PRODUCT USED FOR UNKNOWN INDICATION
     Route: 064
     Dates: start: 20111216
  9. SENNA [Suspect]
     Indication: PRODUCT USED FOR UNKNOWN INDICATION
     Route: 064
     Dates: start: 20120116
  10. SYNTOMETRINE [Suspect]
     Indication: PRODUCT USED FOR UNKNOWN INDICATION
     Route: 064
     Dates: start: 20120718, end: 20120718
  11. ZOPICLONE [Suspect]
     Indication: INSOMNIA
     Route: 064
     Dates: start: 20120210, end: 20120718
  12. ZOPICLONE [Suspect]
     Indication: SLEEP DISORDER
     Route: 064
     Dates: start: 20120210, end: 20120718

REACTIONS (5)
  - Foetal alcohol syndrome [None]
  - Dextrocardia [None]
  - Drug withdrawal syndrome neonatal [None]
  - Visual impairment [None]
  - Maternal drugs affecting foetus [None]
